FAERS Safety Report 8363242-9 (Version None)
Quarter: 2012Q2

REPORT INFORMATION
  Report Type: 
  Country: None (occurrence: None)
  Receive Date: 20120516
  Receipt Date: 20111201
  Transmission Date: 20120825
  Serious: Yes (Hospitalization)
  Sender: FDA-Public Use
  Company Number: US-ALEXION-A201101776

PATIENT
  Sex: Female
  Weight: 64 kg

DRUGS (12)
  1. PREDNISONE [Concomitant]
     Route: 048
  2. SOLIRIS [Suspect]
     Indication: PAROXYSMAL NOCTURNAL HAEMOGLOBINURIA
     Dosage: 900 MG, Q2W
     Route: 042
  3. FOLIC ACID [Concomitant]
     Dosage: 400 UG, QD
     Route: 048
  4. VITAMIN B1 TAB [Concomitant]
     Dosage: 100 MG, QD
     Route: 048
  5. SYNTHROID [Concomitant]
     Indication: HYPOTHYROIDISM
     Dosage: 0.125 MG QD
     Route: 048
  6. CALCIUM CARBONATE [Concomitant]
     Dosage: 600 MG, BID
     Route: 044
  7. CENTRUM [Concomitant]
     Dosage: UNK, 1 QD
     Route: 048
  8. LORTAB [Concomitant]
     Dosage: 7.5 MG,  Q 6 HOURS PRN
     Route: 048
  9. PROPRANOLOL [Concomitant]
     Dosage: 5 MG, BID
     Route: 048
  10. LASIX [Concomitant]
     Route: 048
  11. ALDACTONE [Concomitant]
     Dosage: 100 MG, QD
     Route: 048
  12. OMEPRAZOLE [Concomitant]
     Indication: GASTROOESOPHAGEAL REFLUX DISEASE
     Dosage: 20 MG, QD
     Route: 048

REACTIONS (4)
  - LOWER LIMB FRACTURE [None]
  - URINARY TRACT INFECTION [None]
  - PLATELET COUNT DECREASED [None]
  - ANAEMIA [None]
